FAERS Safety Report 10215729 (Version 2)
Quarter: 2014Q2

REPORT INFORMATION
  Report Type: Report from Study
  Country: GB (occurrence: None)
  Receive Date: 20140506
  Receipt Date: 20140604
  Transmission Date: 20141212
  Serious: Yes (Hospitalization)
  Sender: FDA-Public Use
  Company Number: BTG00115

PATIENT
  Age: 63 Year
  Sex: Female

DRUGS (5)
  1. DIGIFAB [Suspect]
     Indication: TOXICITY TO VARIOUS AGENTS
     Dosage: 4 VIALS
     Dates: start: 20140311
  2. DIGOXIN (DIGOXIN) [Suspect]
     Indication: PRODUCT USED FOR UNKNOWN INDICATION
  3. DIGOXIN (DIGOXIN) [Suspect]
     Indication: PRODUCT USED FOR UNKNOWN INDICATION
  4. METFORMIN (METFORMIN HYDROCHLORIDE) [Concomitant]
  5. DICLOFENAC (DICLOFENAC SODIUM) [Concomitant]

REACTIONS (7)
  - Renal failure acute [None]
  - Bradycardia [None]
  - Toxicity to various agents [None]
  - Drug effect incomplete [None]
  - Hyperkalaemia [None]
  - Mental status changes [None]
  - Visual impairment [None]
